FAERS Safety Report 6212187-9 (Version None)
Quarter: 2009Q2

REPORT INFORMATION
  Report Type: 
  Country: None (occurrence: None)
  Receive Date: 20090602
  Receipt Date: 20090526
  Transmission Date: 20091009
  Serious: Yes (Hospitalization)
  Sender: FDA-Public Use
  Company Number: TW-SANOFI-SYNTHELABO-F01200900509

PATIENT
  Sex: Male

DRUGS (5)
  1. PROCHLORPERAZINE [Concomitant]
     Dosage: UNK
     Route: 065
     Dates: start: 20081203, end: 20090112
  2. METOCLOPRAMIDE [Concomitant]
     Dosage: UNK
     Route: 065
     Dates: start: 20081203, end: 20090112
  3. CAPECITABINE [Suspect]
     Route: 048
     Dates: start: 20081203
  4. ELOXATIN [Suspect]
     Indication: METASTATIC GASTRIC CANCER
     Route: 041
  5. TROPISETRON [Concomitant]
     Dosage: UNK
     Route: 065
     Dates: start: 20081203, end: 20090112

REACTIONS (4)
  - HYPOKALAEMIA [None]
  - HYPONATRAEMIA [None]
  - LEUKOCYTOSIS [None]
  - RESPIRATORY FAILURE [None]
